FAERS Safety Report 4891836-1 (Version None)
Quarter: 2006Q1

REPORT INFORMATION
  Report Type: 
  Country: None (occurrence: None)
  Receive Date: 20060126
  Receipt Date: 20060120
  Transmission Date: 20060701
  Serious: Yes (Death, Life-Threatening)
  Sender: FDA-Public Use
  Company Number: PL-JNJFOC-20050405307

PATIENT
  Sex: Male

DRUGS (11)
  1. BLINDED; ABCIXIMA [Suspect]
     Route: 042
  2. BLINDED; ABCIXIMA [Suspect]
     Route: 042
  3. PLACEBO [Suspect]
     Route: 042
  4. PLACEBO [Suspect]
     Route: 042
  5. CAPTOPRIL [Concomitant]
     Route: 048
  6. METOPROLOL [Concomitant]
     Route: 048
  7. ENALAPRIL [Concomitant]
     Route: 048
  8. NITRENDIPINE [Concomitant]
     Route: 048
  9. AMIODARONE HCL [Concomitant]
     Route: 048
  10. URAPIDIL [Concomitant]
     Route: 042
  11. MANNITOLUM [Concomitant]
     Route: 042

REACTIONS (2)
  - BLOOD PRESSURE INCREASED [None]
  - HAEMORRHAGIC TRANSFORMATION STROKE [None]
